FAERS Safety Report 9866843 (Version 1)
Quarter: 2014Q1

REPORT INFORMATION
  Report Type: Report from Study
  Country: US (occurrence: US)
  Receive Date: 20140204
  Receipt Date: 20140204
  Transmission Date: 20141002
  Serious: Yes (Other)
  Sender: FDA-Public Use
  Company Number: US-ALEXION-A201400237

PATIENT
  Sex: 0

DRUGS (2)
  1. SOLIRIS [Suspect]
     Indication: PAROXYSMAL NOCTURNAL HAEMOGLOBINURIA
     Dosage: 1500, MG Q2W
     Dates: start: 20080229
  2. COUMADIN [Concomitant]
     Dosage: UNK
     Dates: start: 20080128

REACTIONS (2)
  - Packed red blood cell transfusion [Unknown]
  - Incorrect dose administered [Unknown]
